FAERS Safety Report 25496964 (Version 2)
Quarter: 2025Q3

REPORT INFORMATION
  Report Type: Spontaneous
  Country: US (occurrence: US)
  Receive Date: 20250701
  Receipt Date: 20250710
  Transmission Date: 20251021
  Serious: Yes (Other)
  Sender: SANDOZ
  Company Number: US-SANDOZ-SDZ2025US045526

PATIENT
  Age: 78 Year
  Sex: Female
  Weight: 62 kg

DRUGS (7)
  1. AZITHROMYCIN [Suspect]
     Active Substance: AZITHROMYCIN
     Indication: Mycobacterium avium complex infection
     Dosage: 250 MG, TIW
     Route: 048
     Dates: start: 20231106, end: 20240208
  2. AZITHROMYCIN [Suspect]
     Active Substance: AZITHROMYCIN
     Indication: Bronchiectasis
     Route: 065
     Dates: start: 202403
  3. AZITHROMYCIN [Suspect]
     Active Substance: AZITHROMYCIN
     Route: 065
     Dates: start: 20250404
  4. ETHAMBUTOL [Suspect]
     Active Substance: ETHAMBUTOL HYDROCHLORIDE
     Indication: Mycobacterium avium complex infection
     Dosage: 1200 MG, TIW
     Route: 065
  5. ETHAMBUTOL [Suspect]
     Active Substance: ETHAMBUTOL HYDROCHLORIDE
     Indication: Bronchiectasis
  6. RIFAMPIN [Suspect]
     Active Substance: RIFAMPIN
     Indication: Mycobacterium avium complex infection
     Route: 048
     Dates: start: 20231106, end: 20240909
  7. RIFAMPIN [Suspect]
     Active Substance: RIFAMPIN
     Indication: Bronchiectasis

REACTIONS (5)
  - Atypical mycobacterial infection [Unknown]
  - Deafness [Recovering/Resolving]
  - Drug resistance [Unknown]
  - Chills [Recovering/Resolving]
  - Pyrexia [Recovering/Resolving]

NARRATIVE: CASE EVENT DATE: 20240208
